FAERS Safety Report 21297036 (Version 1)
Quarter: 2022Q3

REPORT INFORMATION
  Report Type: Spontaneous
  Country: US (occurrence: None)
  Receive Date: 20220905
  Receipt Date: 20220905
  Transmission Date: 20221026
  Serious: Yes (Other)
  Sender: FDA-Public Use
  Company Number: None

PATIENT
  Age: 54 Year
  Sex: Male
  Weight: 90 kg

DRUGS (9)
  1. BEBTELOVIMAB [Suspect]
     Active Substance: BEBTELOVIMAB
     Indication: SARS-CoV-2 test positive
     Dates: start: 202208, end: 202208
  2. METFORMIN [Concomitant]
     Active Substance: METFORMIN HYDROCHLORIDE
  3. LISINOPRIL [Concomitant]
     Active Substance: LISINOPRIL
  4. OMEPRAZOLE [Concomitant]
     Active Substance: OMEPRAZOLE
  5. TAMSULOSIN [Concomitant]
     Active Substance: TAMSULOSIN
  6. LOPERAMIDE [Concomitant]
     Active Substance: LOPERAMIDE
  7. GABAPENTIN [Concomitant]
     Active Substance: GABAPENTIN
  8. Acetominaphen [Concomitant]
  9. MELATONIN [Concomitant]
     Active Substance: MELATONIN

REACTIONS (5)
  - Feeling cold [None]
  - Tremor [None]
  - Heart rate increased [None]
  - Nausea [None]
  - Vomiting [None]

NARRATIVE: CASE EVENT DATE: 20220808
